FAERS Safety Report 7596479-7 (Version None)
Quarter: 2011Q3

REPORT INFORMATION
  Report Type: 
  Country: None (occurrence: None)
  Receive Date: 20110708
  Receipt Date: 20110629
  Transmission Date: 20111222
  Serious: Yes (Hospitalization)
  Sender: FDA-Public Use
  Company Number: US-BIOGENIDEC-2011BI021698

PATIENT
  Age: 43 Year
  Sex: Female

DRUGS (1)
  1. AVONEX [Suspect]
     Indication: MULTIPLE SCLEROSIS
     Route: 030
     Dates: start: 20091230

REACTIONS (5)
  - PAIN IN EXTREMITY [None]
  - TYPE 2 DIABETES MELLITUS [None]
  - MUSCULAR WEAKNESS [None]
  - BACK PAIN [None]
  - HYPOAESTHESIA [None]
